FAERS Safety Report 10228393 (Version 1)
Quarter: 2014Q2

REPORT INFORMATION
  Report Type: Spontaneous
  Country: US (occurrence: None)
  Receive Date: 20140505
  Receipt Date: 20140505
  Transmission Date: 20141212
  Serious: No
  Sender: FDA-Public Use
  Company Number: US-015340

PATIENT
  Age: 46 Year
  Sex: Male
  Weight: 170 kg

DRUGS (1)
  1. PICO-SALAX (NOT SPECIFIED) [Suspect]
     Indication: BOWEL PREPARATION
     Dosage: FIRST PACKET: 4:00 PML; SECOND PACKET: 9:00 PM?
     Route: 048
     Dates: start: 20140413, end: 20140413

REACTIONS (4)
  - Pallor [None]
  - Nausea [None]
  - Vomiting [None]
  - Headache [None]
